FAERS Safety Report 18135402 (Version 1)
Quarter: 2020Q3

REPORT INFORMATION
  Report Type: Report from Study
  Country: US (occurrence: US)
  Receive Date: 20200811
  Receipt Date: 20200811
  Transmission Date: 20201103
  Serious: Yes (Other)
  Sender: FDA-Public Use
  Company Number: US-BIOVITRUM-2020US4157

PATIENT
  Age: 40 Year
  Sex: Female

DRUGS (1)
  1. KINERET [Suspect]
     Active Substance: ANAKINRA
     Indication: PROTEINURIA
     Route: 058
     Dates: start: 20190305

REACTIONS (6)
  - Pain [Unknown]
  - Product dose omission issue [Unknown]
  - Ovarian cyst ruptured [Unknown]
  - Off label use [Not Recovered/Not Resolved]
  - Diverticulitis [Unknown]
  - Ovarian cyst [Unknown]

NARRATIVE: CASE EVENT DATE: 20190305
